FAERS Safety Report 15672326 (Version 1)
Quarter: 2018Q4

REPORT INFORMATION
  Report Type: Report from Study
  Country: US (occurrence: US)
  Receive Date: 20181129
  Receipt Date: 20181129
  Transmission Date: 20190205
  Serious: Yes (Other)
  Sender: FDA-Public Use
  Company Number: US-TESARO, INC-US-2017TSO01512

PATIENT
  Age: 65 Year
  Sex: Female
  Weight: 45.36 kg

DRUGS (9)
  1. ZEJULA [Suspect]
     Active Substance: NIRAPARIB
     Dosage: 200 MG, QD
     Route: 048
     Dates: start: 20170802
  2. ZEJULA [Suspect]
     Active Substance: NIRAPARIB
     Dosage: 100 MG, QD
     Route: 048
  3. ZEJULA [Suspect]
     Active Substance: NIRAPARIB
     Dosage: 100 MG, QD
     Route: 048
  4. ZEJULA [Suspect]
     Active Substance: NIRAPARIB
     Dosage: 100 MG, QD
     Route: 048
  5. ZEJULA [Suspect]
     Active Substance: NIRAPARIB
     Dosage: 100 MG, QD
     Route: 048
     Dates: start: 20171127
  6. ZEJULA [Suspect]
     Active Substance: NIRAPARIB
     Dosage: 100 MG, QD
     Route: 048
  7. ZEJULA [Suspect]
     Active Substance: NIRAPARIB
     Indication: FALLOPIAN TUBE CANCER
     Dosage: 300 MG, QD
     Route: 048
     Dates: start: 20170621, end: 20170703
  8. ZEJULA [Suspect]
     Active Substance: NIRAPARIB
     Dosage: 100 MG, QD
     Route: 048
     Dates: start: 20170802
  9. ZEJULA [Suspect]
     Active Substance: NIRAPARIB
     Dosage: UNK
     Route: 048

REACTIONS (34)
  - Rhinorrhoea [Not Recovered/Not Resolved]
  - Secretion discharge [Unknown]
  - Oropharyngeal pain [Unknown]
  - Gingival bleeding [Not Recovered/Not Resolved]
  - Stomatitis [Recovered/Resolved]
  - Constipation [Recovering/Resolving]
  - Nasopharyngitis [Not Recovered/Not Resolved]
  - Neoplasm recurrence [Unknown]
  - Hypertension [Recovering/Resolving]
  - Blood count abnormal [Unknown]
  - Blood pressure fluctuation [Recovering/Resolving]
  - Flatulence [Unknown]
  - Gastrooesophageal reflux disease [Not Recovered/Not Resolved]
  - Stress [Unknown]
  - Respiratory tract irritation [Unknown]
  - Viral infection [Unknown]
  - Emotional distress [Unknown]
  - Nausea [Unknown]
  - Muscle spasms [Unknown]
  - White blood cell count abnormal [Unknown]
  - Drug ineffective [Not Recovered/Not Resolved]
  - Adverse drug reaction [Unknown]
  - Eastern Cooperative Oncology Group performance status worsened [Unknown]
  - Solar dermatitis [Not Recovered/Not Resolved]
  - Neutrophil count abnormal [Unknown]
  - Abdominal pain lower [Unknown]
  - Sinus congestion [Unknown]
  - White blood cell count decreased [Not Recovered/Not Resolved]
  - Neutrophil count decreased [Not Recovered/Not Resolved]
  - Sunburn [Not Recovered/Not Resolved]
  - Sinus pain [Unknown]
  - Abdominal distension [Not Recovered/Not Resolved]
  - Nasal congestion [Unknown]
  - Gingival pain [Not Recovered/Not Resolved]

NARRATIVE: CASE EVENT DATE: 201706
